FAERS Safety Report 9167388 (Version 1)
Quarter: 2013Q1

REPORT INFORMATION
  Report Type: Spontaneous
  Country: IT (occurrence: None)
  Receive Date: 20130304
  Receipt Date: 20130304
  Transmission Date: 20140127
  Serious: Yes (Hospitalization)
  Sender: FDA-Public Use
  Company Number: SYM-2013-00967

PATIENT
  Age: 69 Year
  Sex: Female

DRUGS (1)
  1. WELLBUTRIN (BUPROPION HYDROCHLORIDE) (TABLETS) (BUPROPION HYDROCHLORIDE) [Suspect]
     Indication: DEPRESSION
     Dates: start: 20121221, end: 20121222

REACTIONS (3)
  - Drug abuse [None]
  - Breath odour [None]
  - Vomiting [None]
